FAERS Safety Report 19870309 (Version 1)
Quarter: 2021Q3

REPORT INFORMATION
  Report Type: Spontaneous
  Country: RU (occurrence: RU)
  Receive Date: 20210922
  Receipt Date: 20210922
  Transmission Date: 20211014
  Serious: Yes (Other)
  Sender: FDA-Public Use
  Company Number: RU-FRESENIUS KABI-FK202110199

PATIENT
  Age: 42 Year
  Sex: Female

DRUGS (2)
  1. ZOLEDRONIC ACID [Concomitant]
     Active Substance: ZOLEDRONIC ACID
     Indication: CERVIX CARCINOMA
     Dosage: 4TH LINE THERAPY
     Route: 065
     Dates: start: 201909, end: 201911
  2. IRINOTECAN (MANUFACTURER UNKNOWN) [Suspect]
     Active Substance: IRINOTECAN
     Indication: CERVIX CARCINOMA
     Dosage: 4TH LINE THERAPY
     Route: 065
     Dates: start: 201909, end: 201911

REACTIONS (1)
  - Haematotoxicity [Unknown]
